FAERS Safety Report 25621826 (Version 1)
Quarter: 2025Q3

REPORT INFORMATION
  Report Type: Spontaneous
  Country: US (occurrence: None)
  Receive Date: 20250729
  Receipt Date: 20250729
  Transmission Date: 20251021
  Serious: Yes (Hospitalization)
  Sender: FDA-CTU
  Company Number: None

PATIENT
  Age: 53 Year
  Sex: Female

DRUGS (1)
  1. ENBREL [Suspect]
     Active Substance: ETANERCEPT
     Dosage: 50MG WEEKLY

REACTIONS (5)
  - Cerebrovascular accident [None]
  - Orthostatic hypotension [None]
  - Therapy cessation [None]
  - Systemic lupus erythematosus [None]
  - Drug ineffective [None]
